FAERS Safety Report 24696272 (Version 1)
Quarter: 2024Q4

REPORT INFORMATION
  Report Type: Spontaneous
  Country: US (occurrence: US)
  Receive Date: 20241204
  Receipt Date: 20241204
  Transmission Date: 20250115
  Serious: Yes (Other)
  Sender: TORRENT PHARMA INC.
  Company Number: US-TORRENT-00013877

PATIENT
  Age: 57 Year
  Sex: Male

DRUGS (3)
  1. DAPSONE [Interacting]
     Active Substance: DAPSONE
     Indication: Antifungal prophylaxis
     Dosage: UNKNOWN
     Route: 065
  2. BELZUTIFAN [Interacting]
     Active Substance: BELZUTIFAN
     Indication: Clear cell renal cell carcinoma
     Dosage: 80 MG PO DAILY; APPROVED DOSE 120 MG?PO DAILY
     Route: 048
  3. EVEROLIMUS [Concomitant]
     Active Substance: EVEROLIMUS
     Indication: Clear cell renal cell carcinoma
     Dosage: 5 MG PO DAILY; APPROVED?DOSE 10 MG PO DAILY
     Route: 048

REACTIONS (2)
  - Haemolytic anaemia [Recovered/Resolved]
  - Drug interaction [Recovered/Resolved]
